FAERS Safety Report 8219181-7 (Version None)
Quarter: 2012Q1

REPORT INFORMATION
  Report Type: 
  Country: None (occurrence: None)
  Receive Date: 20120307
  Receipt Date: 20091102
  Transmission Date: 20120608
  Serious: No
  Sender: FDA-Public Use
  Company Number: PHEH2009US15536

PATIENT
  Sex: Male

DRUGS (5)
  1. ZOCOR [Concomitant]
  2. FENTANYL [Concomitant]
  3. VICODIN [Concomitant]
  4. AFINITOR [Suspect]
     Dosage: 10 MG, UNK
     Dates: start: 20090801
  5. COZAAR [Concomitant]

REACTIONS (3)
  - ORAL HERPES [None]
  - PAIN IN EXTREMITY [None]
  - HEADACHE [None]
